FAERS Safety Report 16171598 (Version 3)
Quarter: 2019Q4

REPORT INFORMATION
  Report Type: Report from Study
  Country: US (occurrence: US)
  Receive Date: 20190408
  Receipt Date: 20191120
  Transmission Date: 20200122
  Serious: Yes (Hospitalization)
  Sender: FDA-Public Use
  Company Number: US-ACTELION-A-US2019-185057

PATIENT
  Age: 70 Year
  Sex: Female
  Weight: 39 kg

DRUGS (11)
  1. LETAIRIS [Concomitant]
     Active Substance: AMBRISENTAN
     Dosage: UNK
     Dates: start: 20180110
  2. SILDENAFIL. [Concomitant]
     Active Substance: SILDENAFIL
     Dosage: 40 MG, TID
     Route: 048
     Dates: start: 20180110
  3. POTASSIUM CHLORIDE. [Concomitant]
     Active Substance: POTASSIUM CHLORIDE
     Dosage: 20 MEQ, QD
     Dates: start: 20180420
  4. REMODULIN [Concomitant]
     Active Substance: TREPROSTINIL
     Dosage: 1.2 MCG
  5. ACETAMINOPHEN. [Concomitant]
     Active Substance: ACETAMINOPHEN
     Dosage: 650 MG, Q6HRS
  6. UPTRAVI [Suspect]
     Active Substance: SELEXIPAG
     Dosage: 1600 MCG, BID
     Route: 048
     Dates: start: 20190108, end: 20190329
  7. FLUTICASONE. [Concomitant]
     Active Substance: FLUTICASONE
     Dosage: 2 PUFFS, BID
     Dates: start: 20181217
  8. LASIX [Concomitant]
     Active Substance: FUROSEMIDE
     Dosage: UNK
     Dates: start: 20180420
  9. DILTIAZEM. [Concomitant]
     Active Substance: DILTIAZEM
     Dosage: UNK
     Dates: start: 20180921
  10. UPTRAVI [Suspect]
     Active Substance: SELEXIPAG
     Indication: PULMONARY ARTERIAL HYPERTENSION
     Dosage: 200 MCG, BID
     Route: 048
  11. PANTOPRAZOLE [Concomitant]
     Active Substance: PANTOPRAZOLE
     Dosage: 40 MG, QAM
     Dates: start: 20180118

REACTIONS (13)
  - Head discomfort [Unknown]
  - Pulmonary arterial hypertension [Recovered/Resolved with Sequelae]
  - Nasal congestion [Unknown]
  - Brain natriuretic peptide increased [Recovered/Resolved with Sequelae]
  - Dyspepsia [Unknown]
  - Blood pressure abnormal [Unknown]
  - Respiratory failure [Recovered/Resolved with Sequelae]
  - Diarrhoea [Unknown]
  - Dyspnoea [Recovered/Resolved with Sequelae]
  - Cardiac failure congestive [Recovering/Resolving]
  - Headache [Unknown]
  - Asthenia [Unknown]
  - Fatigue [Unknown]

NARRATIVE: CASE EVENT DATE: 20190309
